FAERS Safety Report 24065379 (Version 2)
Quarter: 2024Q3

REPORT INFORMATION
  Report Type: Spontaneous
  Country: JP (occurrence: JP)
  Receive Date: 20240709
  Receipt Date: 20240808
  Transmission Date: 20241017
  Serious: Yes (Other)
  Sender: OTSUKA
  Company Number: JP-OTSUKA-2024_018970

PATIENT
  Age: 92 Year
  Sex: Female

DRUGS (6)
  1. SAMSCA [Suspect]
     Active Substance: TOLVAPTAN
     Indication: Cardiac failure
     Dosage: 7.5MG
     Route: 065
  2. SAMSCA [Suspect]
     Active Substance: TOLVAPTAN
     Dosage: AT A LOW DOSE
     Route: 065
  3. AZOSEMIDE [Suspect]
     Active Substance: AZOSEMIDE
     Indication: Product used for unknown indication
     Dosage: UNK
     Route: 065
  4. WARFARIN POTASSIUM [Concomitant]
     Active Substance: WARFARIN POTASSIUM
     Indication: Product used for unknown indication
     Dosage: UNK
     Route: 065
  5. CARVEDILOL [Concomitant]
     Active Substance: CARVEDILOL
     Indication: Product used for unknown indication
     Dosage: UNK
     Route: 065
  6. ENALAPRIL [Concomitant]
     Active Substance: ENALAPRIL
     Indication: Product used for unknown indication
     Dosage: UNK
     Route: 065

REACTIONS (5)
  - Azotaemia [Unknown]
  - Full blood count decreased [Unknown]
  - Renal impairment [Unknown]
  - Hyperkalaemia [Recovering/Resolving]
  - Blood urea increased [Unknown]
